FAERS Safety Report 11734030 (Version 9)
Quarter: 2017Q1

REPORT INFORMATION
  Report Type: Spontaneous
  Country: US (occurrence: US)
  Receive Date: 20151113
  Receipt Date: 20170207
  Transmission Date: 20170428
  Serious: Yes (Other)
  Sender: FDA-Public Use
  Company Number: PHEH2015US022846

PATIENT
  Sex: Female
  Weight: 86.17 kg

DRUGS (5)
  1. ONDANSETRON [Suspect]
     Active Substance: ONDANSETRON
     Indication: PRODUCT USED FOR UNKNOWN INDICATION
     Route: 048
     Dates: start: 201209, end: 201303
  2. ONDANSETRON [Suspect]
     Active Substance: ONDANSETRON
     Indication: PRODUCT USED FOR UNKNOWN INDICATION
     Route: 065
     Dates: start: 201209, end: 201303
  3. ONDANSETRON. [Suspect]
     Active Substance: ONDANSETRON
     Indication: VOMITING IN PREGNANCY
     Dosage: UNK UNK, QD
     Route: 065
     Dates: start: 201204, end: 201210
  4. ZOFRAN [Suspect]
     Active Substance: ONDANSETRON HYDROCHLORIDE
     Indication: VOMITING IN PREGNANCY
     Route: 042
  5. ZOFRAN [Suspect]
     Active Substance: ONDANSETRON HYDROCHLORIDE
     Indication: VOMITING IN PREGNANCY
     Dosage: UNK, QD
     Route: 048
     Dates: start: 201204, end: 201210

REACTIONS (7)
  - Injury [Unknown]
  - Maternal exposure during pregnancy [Unknown]
  - Emotional distress [Unknown]
  - Pain [Unknown]
  - Anxiety [Unknown]
  - Premature delivery [Unknown]
  - Product use issue [Unknown]
